FAERS Safety Report 9018823 (Version 3)
Quarter: 2013Q1

REPORT INFORMATION
  Report Type: Spontaneous
  Country: US (occurrence: US)
  Receive Date: 20130118
  Receipt Date: 20130301
  Transmission Date: 20140127
  Serious: Yes (Hospitalization, Other)
  Sender: FDA-Public Use
  Company Number: US-009507513-1301USA006469

PATIENT
  Age: 76 None
  Sex: Female
  Weight: 77.55 kg

DRUGS (4)
  1. FOSAMAX [Suspect]
     Indication: OSTEOPOROSIS
     Dosage: UNK, QW
     Route: 048
     Dates: start: 2007, end: 20121220
  2. FOSAMAX [Suspect]
     Dosage: UNK
     Route: 048
     Dates: end: 2007
  3. FOSAMAX [Suspect]
     Dosage: UNK
  4. CRESTOR [Concomitant]

REACTIONS (7)
  - Femur fracture [Recovered/Resolved]
  - Hip fracture [Recovered/Resolved]
  - Lower limb fracture [Recovered/Resolved]
  - Fall [Recovered/Resolved]
  - Upper limb fracture [Unknown]
  - Foot fracture [Unknown]
  - Fall [Unknown]
